FAERS Safety Report 20319825 (Version 7)
Quarter: 2022Q2

REPORT INFORMATION
  Report Type: Report from Study
  Country: US (occurrence: US)
  Receive Date: 20220111
  Receipt Date: 20220420
  Transmission Date: 20220720
  Serious: Yes (Other)
  Sender: FDA-Public Use
  Company Number: US-NOVARTISTESTPH-NVSC2022US004197

PATIENT
  Sex: Male

DRUGS (1)
  1. TABRECTA [Suspect]
     Active Substance: CAPMATINIB
     Indication: Product used for unknown indication
     Dosage: UNK
     Route: 048

REACTIONS (13)
  - Lung neoplasm malignant [Unknown]
  - Neuropathy peripheral [Unknown]
  - Abdominal discomfort [Unknown]
  - Dyspnoea exertional [Unknown]
  - Product supply issue [Unknown]
  - Arthralgia [Unknown]
  - Fat tissue increased [Unknown]
  - Myalgia [Unknown]
  - Joint swelling [Unknown]
  - Fatigue [Unknown]
  - Peripheral swelling [Unknown]
  - Nausea [Unknown]
  - Product use issue [Unknown]
